FAERS Safety Report 8522386-9 (Version None)
Quarter: 2012Q3

REPORT INFORMATION
  Report Type: 
  Country: None (occurrence: None)
  Receive Date: 20120719
  Receipt Date: 20120718
  Transmission Date: 20120928
  Serious: No
  Sender: FDA-Public Use
  Company Number: US-PFIZER INC-2012174260

PATIENT
  Sex: Female
  Weight: 63.5 kg

DRUGS (4)
  1. CHANTIX [Suspect]
     Indication: SMOKING CESSATION THERAPY
     Dosage: UNK
     Route: 048
  2. TIAZAC [Concomitant]
     Indication: CARDIAC DISORDER
     Dosage: 250 MG,DAILY
  3. DIAZEPAM [Concomitant]
     Indication: DEPRESSION
     Dosage: 5 MG,DAILY
  4. AMITRIPTYLINE [Concomitant]
     Indication: DEPRESSION
     Dosage: 10 MG,DAILY

REACTIONS (1)
  - DYSGEUSIA [None]
